FAERS Safety Report 17668724 (Version 1)
Quarter: 2020Q2

REPORT INFORMATION
  Report Type: Spontaneous
  Country: ES (occurrence: ES)
  Receive Date: 20200415
  Receipt Date: 20200415
  Transmission Date: 20200713
  Serious: Yes (Other)
  Sender: FDA-Public Use
  Company Number: ES-AUROBINDO-AUR-APL-2020-017729

PATIENT
  Age: 70 Year
  Sex: Female
  Weight: 60 kg

DRUGS (3)
  1. NAPROXEN SODIUM. [Suspect]
     Active Substance: NAPROXEN SODIUM
     Indication: BACK PAIN
     Dosage: 1 DOSAGE FORM, EVERY OTHER DAY,1 C/12 H
     Route: 048
     Dates: start: 20200329, end: 20200329
  2. ALPRAZOLAM NORMON [Concomitant]
     Active Substance: ALPRAZOLAM
     Indication: CHEST PAIN
     Dosage: UNK
     Route: 065
     Dates: start: 20200312
  3. PARACETAMOL CINFA [Concomitant]
     Indication: CHEST PAIN
     Dosage: UNK
     Route: 065

REACTIONS (2)
  - Presyncope [Recovering/Resolving]
  - Pruritus [Recovered/Resolved]

NARRATIVE: CASE EVENT DATE: 20200329
